FAERS Safety Report 23364277 (Version 1)
Quarter: 2024Q1

REPORT INFORMATION
  Report Type: Spontaneous
  Country: CN (occurrence: CN)
  Receive Date: 20240104
  Receipt Date: 20240104
  Transmission Date: 20240409
  Serious: Yes (Hospitalization)
  Sender: FDA-Public Use
  Company Number: CN-NOVOPROD-1156510

PATIENT
  Sex: Male

DRUGS (1)
  1. TRESIBA [Suspect]
     Active Substance: INSULIN DEGLUDEC
     Indication: Type 2 diabetes mellitus
     Dosage: 28 IU, QD

REACTIONS (4)
  - Ketosis [Unknown]
  - Blood glucose increased [Recovered/Resolved]
  - Drug ineffective [Unknown]
  - Suspected product quality issue [Unknown]
